FAERS Safety Report 8589464-X (Version None)
Quarter: 2012Q3

REPORT INFORMATION
  Report Type: 
  Country: None (occurrence: None)
  Receive Date: 20120813
  Receipt Date: 20120807
  Transmission Date: 20120928
  Serious: Yes (Life-Threatening, Other)
  Sender: FDA-Public Use
  Company Number: FR-ASTRAZENECA-2012SE56061

PATIENT
  Age: 7492 Day
  Sex: Male

DRUGS (4)
  1. MIDAZOLAM HCL [Concomitant]
     Indication: PREMEDICATION
     Route: 042
     Dates: start: 20120406, end: 20120406
  2. DIPRIVAN [Suspect]
     Indication: GENERAL ANAESTHESIA
     Route: 042
     Dates: start: 20120406, end: 20120406
  3. SUFENTANIL CITRATE [Suspect]
     Indication: GENERAL ANAESTHESIA
     Route: 042
     Dates: start: 20120406, end: 20120406
  4. NIMBEX [Suspect]
     Indication: GENERAL ANAESTHESIA
     Route: 042
     Dates: start: 20120406, end: 20120406

REACTIONS (5)
  - ANAPHYLACTOID REACTION [None]
  - ELECTROCARDIOGRAM QRS COMPLEX PROLONGED [None]
  - TACHYCARDIA [None]
  - BRADYCARDIA [None]
  - HYPOKALAEMIA [None]
